FAERS Safety Report 4575581-8 (Version None)
Quarter: 2005Q1

REPORT INFORMATION
  Report Type: 
  Country: None (occurrence: None)
  Receive Date: 20050209
  Receipt Date: 20050201
  Transmission Date: 20050727
  Serious: Yes (Death)
  Sender: FDA-Public Use
  Company Number: US-JNJFOC-20050200336

PATIENT
  Sex: Female
  Weight: 52.16 kg

DRUGS (1)
  1. DURAGESIC [Suspect]
     Indication: DRUG USE FOR UNKNOWN INDICATION
     Route: 062
     Dates: end: 20030130

REACTIONS (1)
  - DRUG TOXICITY [None]
